FAERS Safety Report 22661980 (Version 1)
Quarter: 2023Q2

REPORT INFORMATION
  Report Type: Spontaneous
  Country: US (occurrence: US)
  Receive Date: 20230630
  Receipt Date: 20230630
  Transmission Date: 20230722
  Serious: Yes (Hospitalization, Other)
  Sender: FDA-Public Use
  Company Number: US-TEVA-2023-US-2900733

PATIENT
  Age: 84 Year
  Sex: Female

DRUGS (1)
  1. ALBUTEROL SULFATE [Suspect]
     Active Substance: ALBUTEROL SULFATE
     Indication: Product used for unknown indication
     Dosage: TAKE 1-2 PUFFS AS NEEDED
     Route: 065

REACTIONS (14)
  - Hospitalisation [Unknown]
  - Diabetes mellitus [Unknown]
  - Visual impairment [Unknown]
  - Muscular weakness [Unknown]
  - Gait inability [Unknown]
  - Loss of personal independence in daily activities [Unknown]
  - Illness [Unknown]
  - Nerve injury [Unknown]
  - Blood sodium decreased [Unknown]
  - Dizziness postural [Unknown]
  - Dyspnoea [Unknown]
  - Cardiac disorder [Unknown]
  - Corrective lens user [Unknown]
  - Limb discomfort [Unknown]

NARRATIVE: CASE EVENT DATE: 20230101
